FAERS Safety Report 6887552-7 (Version None)
Quarter: 2010Q3

REPORT INFORMATION
  Report Type: 
  Country: None (occurrence: None)
  Receive Date: 20100708
  Receipt Date: 20100222
  Transmission Date: 20110219
  Serious: Yes (Hospitalization)
  Sender: FDA-Public Use
  Company Number: 2009316348

PATIENT
  Age: 41 Year
  Sex: Male
  Weight: 112 kg

DRUGS (3)
  1. CHANTIX [Suspect]
     Indication: SMOKING CESSATION THERAPY
     Dosage: 1 MG, 2X/DAY, ORAL
     Route: 048
     Dates: start: 20080129, end: 20080211
  2. LEVAQUIN [Concomitant]
  3. SOMA [Concomitant]

REACTIONS (4)
  - ALCOHOL USE [None]
  - DEPRESSION [None]
  - OPIATES POSITIVE [None]
  - SUICIDE ATTEMPT [None]
